FAERS Safety Report 8308496 (Version 2)
Quarter: 2012Q4

REPORT INFORMATION
  Report Type: 
  Country: US (occurrence: US)
  Receive Date: 20111222
  Receipt Date: 20121214
  Transmission Date: 20130627
  Serious: No
  Sender: FDA-Public Use
  Company Number: US-GLAXOSMITHKLINE-A0939925A

PATIENT
  Sex: Male

DRUGS (2)
  1. AVODART [Suspect]
     Indication: BENIGN PROSTATIC HYPERPLASIA
     Dosage: .5MG Per day
     Route: 048
     Dates: start: 200909, end: 20110802
  2. CIPRO [Concomitant]

REACTIONS (4)
  - Prostatic specific antigen increased [Not Recovered/Not Resolved]
  - Ejaculation disorder [Unknown]
  - Ejaculation failure [Unknown]
  - Erectile dysfunction [Unknown]
